FAERS Safety Report 11100701 (Version 2)
Quarter: 2015Q2

REPORT INFORMATION
  Report Type: Spontaneous
  Country: TR (occurrence: TR)
  Receive Date: 20150508
  Receipt Date: 20150508
  Transmission Date: 20150821
  Serious: Yes (Hospitalization)
  Sender: FDA-Public Use
  Company Number: PHHY2015TR053892

PATIENT
  Age: 36 Year
  Sex: Male

DRUGS (4)
  1. ZUCLOPENTHIXOL [Concomitant]
     Active Substance: ZUCLOPENTHIXOL
     Indication: SCHIZOPHRENIA
     Route: 065
     Dates: start: 2012
  2. RISPERIDONE. [Concomitant]
     Active Substance: RISPERIDONE
     Indication: SCHIZOPHRENIA
     Dosage: 8 MG, QD
     Route: 065
     Dates: start: 2012
  3. CLOZAPINE. [Suspect]
     Active Substance: CLOZAPINE
     Indication: SCHIZOPHRENIA
     Dosage: 600 MG, QD
     Route: 065
     Dates: start: 2012
  4. BIPERIDENE [Concomitant]
     Active Substance: BIPERIDEN
     Indication: SCHIZOPHRENIA
     Dosage: 4 MG, QD
     Route: 065
     Dates: start: 2012

REACTIONS (7)
  - Abnormal behaviour [Recovering/Resolving]
  - Aggression [Recovering/Resolving]
  - Grandiosity [Recovering/Resolving]
  - Psychomotor hyperactivity [Recovering/Resolving]
  - Insomnia [Recovering/Resolving]
  - Mania [Recovering/Resolving]
  - Irritability [Recovering/Resolving]
